FAERS Safety Report 25510512 (Version 1)
Quarter: 2025Q3

REPORT INFORMATION
  Report Type: Spontaneous
  Country: CH (occurrence: CH)
  Receive Date: 20250703
  Receipt Date: 20250703
  Transmission Date: 20251020
  Serious: Yes (Other)
  Sender: NOVARTIS
  Company Number: CH-002147023-NVSC2025CH104148

PATIENT

DRUGS (14)
  1. EVEROLIMUS [Suspect]
     Active Substance: EVEROLIMUS
     Indication: Phaeochromocytoma
     Route: 065
  2. EVEROLIMUS [Suspect]
     Active Substance: EVEROLIMUS
     Indication: Metastasis
  3. PACLITAXEL [Suspect]
     Active Substance: PACLITAXEL
     Indication: Phaeochromocytoma
     Route: 065
  4. PACLITAXEL [Suspect]
     Active Substance: PACLITAXEL
     Indication: Metastasis
  5. DOCETAXEL [Suspect]
     Active Substance: DOCETAXEL
     Indication: Phaeochromocytoma
     Route: 065
  6. DOCETAXEL [Suspect]
     Active Substance: DOCETAXEL
     Indication: Metastasis
  7. CYCLOPHOSPHAMIDE [Suspect]
     Active Substance: CYCLOPHOSPHAMIDE
     Indication: Phaeochromocytoma
     Route: 065
  8. CYCLOPHOSPHAMIDE [Suspect]
     Active Substance: CYCLOPHOSPHAMIDE
     Indication: Metastasis
  9. VINCRISTINE [Suspect]
     Active Substance: VINCRISTINE
     Indication: Phaeochromocytoma
     Route: 065
  10. VINCRISTINE [Suspect]
     Active Substance: VINCRISTINE
     Indication: Metastasis
  11. DACARBAZINE [Suspect]
     Active Substance: DACARBAZINE
     Indication: Phaeochromocytoma
     Route: 065
  12. DACARBAZINE [Suspect]
     Active Substance: DACARBAZINE
     Indication: Metastasis
  13. SUNITINIB [Concomitant]
     Active Substance: SUNITINIB
     Indication: Phaeochromocytoma
     Route: 065
  14. SUNITINIB [Concomitant]
     Active Substance: SUNITINIB
     Indication: Metastasis

REACTIONS (3)
  - Phaeochromocytoma [Unknown]
  - Malignant neoplasm progression [Unknown]
  - Off label use [Unknown]
